FAERS Safety Report 7406229-2 (Version None)
Quarter: 2011Q2

REPORT INFORMATION
  Report Type: 
  Country: None (occurrence: None)
  Receive Date: 20110401
  Receipt Date: 20110325
  Transmission Date: 20111010
  Serious: Yes (Other)
  Sender: FDA-Public Use
  Company Number: 2011SP007464

PATIENT
  Age: 51 Year
  Sex: Female

DRUGS (1)
  1. TEMODAL [Suspect]
     Indication: MALIGNANT GLIOMA
     Dosage: PO
     Route: 048

REACTIONS (5)
  - NEUROPATHY PERIPHERAL [None]
  - HEMIPLEGIA [None]
  - IIIRD NERVE PARALYSIS [None]
  - APHASIA [None]
  - WHITE BLOOD CELL COUNT DECREASED [None]
